FAERS Safety Report 12259267 (Version 1)
Quarter: 2016Q2

REPORT INFORMATION
  Report Type: Spontaneous
  Country: US (occurrence: US)
  Receive Date: 20160412
  Receipt Date: 20160412
  Transmission Date: 20160815
  Serious: Yes (Other)
  Sender: FDA-Public Use
  Company Number: US-PROCTER_AND_GAMBLE-GS16040210

PATIENT
  Age: 14 Year
  Sex: Male

DRUGS (1)
  1. OLDSPICEAPDO+BSPRAY [Suspect]
     Active Substance: ALUMINUM CHLOROHYDRATE OR ALUMINUM ZIRCONIUM TETRACHLOROHYDREX GLY
     Dosage: DAILY
     Route: 061
     Dates: end: 201603

REACTIONS (9)
  - Erythema [Unknown]
  - Scar [Not Recovered/Not Resolved]
  - Rash erythematous [Recovered/Resolved]
  - Skin irritation [Recovered/Resolved]
  - Scab [Not Recovered/Not Resolved]
  - Axillary pain [Recovered/Resolved]
  - Skin discolouration [Recovering/Resolving]
  - Skin burning sensation [Unknown]
  - Dry skin [Not Recovered/Not Resolved]

NARRATIVE: CASE EVENT DATE: 201603
